FAERS Safety Report 11508425 (Version 1)
Quarter: 2015Q3

REPORT INFORMATION
  Report Type: Spontaneous
  Country: US (occurrence: US)
  Receive Date: 20150915
  Receipt Date: 20150915
  Transmission Date: 20151125
  Serious: No
  Sender: FDA-Public Use
  Company Number: US-009507513-1508USA013130

PATIENT
  Age: 16 Year
  Sex: Female
  Weight: 47.62 kg

DRUGS (1)
  1. NEXPLANON [Suspect]
     Active Substance: ETONOGESTREL
     Indication: CONTRACEPTION
     Dosage: ONE ROD/ 3 YEARS
     Route: 059
     Dates: start: 20131223

REACTIONS (2)
  - Device breakage [Not Recovered/Not Resolved]
  - Device kink [Not Recovered/Not Resolved]

NARRATIVE: CASE EVENT DATE: 20150823
